FAERS Safety Report 7810314-0 (Version None)
Quarter: 2011Q4

REPORT INFORMATION
  Report Type: 
  Country: None (occurrence: None)
  Receive Date: 20111012
  Receipt Date: 20111003
  Transmission Date: 20120403
  Serious: Yes (Other)
  Sender: FDA-Public Use
  Company Number: GB-ASTRAZENECA-2011SE58959

PATIENT
  Age: 60 Year
  Sex: Female
  Weight: 77.4 kg

DRUGS (12)
  1. AMLODIPINE [Concomitant]
  2. QUETIAPINE FUMARATE [Suspect]
     Indication: PSYCHOTIC DISORDER
     Route: 048
     Dates: start: 20110904, end: 20110912
  3. DIAZEPAM [Suspect]
     Indication: PSYCHOTIC DISORDER
     Route: 048
     Dates: start: 20110826, end: 20110912
  4. TRAVOPROST [Concomitant]
  5. DIAZEPAM [Suspect]
     Route: 048
     Dates: start: 20110912, end: 20110914
  6. QUETIAPINE FUMARATE [Suspect]
     Route: 048
     Dates: start: 20110912, end: 20110914
  7. QUETIAPINE FUMARATE [Suspect]
     Route: 048
     Dates: start: 20110912, end: 20110914
  8. DIAZEPAM [Suspect]
     Indication: BIPOLAR I DISORDER
     Route: 048
     Dates: start: 20110826, end: 20110912
  9. VALPROIC ACID [Concomitant]
  10. QUETIAPINE FUMARATE [Suspect]
     Indication: BIPOLAR I DISORDER
     Route: 048
     Dates: start: 20110904, end: 20110912
  11. DIAZEPAM [Suspect]
     Route: 048
     Dates: start: 20110912, end: 20110914
  12. LISINOPRIL [Concomitant]

REACTIONS (7)
  - CONFUSIONAL STATE [None]
  - HYPOTENSION [None]
  - TACHYCARDIA [None]
  - ATAXIA [None]
  - VISION BLURRED [None]
  - SOMNOLENCE [None]
  - COMA SCALE ABNORMAL [None]
